FAERS Safety Report 25078701 (Version 1)
Quarter: 2025Q1

REPORT INFORMATION
  Report Type: Spontaneous
  Country: CN (occurrence: CN)
  Receive Date: 20250314
  Receipt Date: 20250314
  Transmission Date: 20250408
  Serious: Yes (Other)
  Sender: AMGEN
  Company Number: CN-AMGEN-CHNSP2025045797

PATIENT
  Age: 58 Year
  Sex: Male

DRUGS (12)
  1. PROLIA [Suspect]
     Active Substance: DENOSUMAB
     Indication: Prophylaxis
     Route: 065
  2. DACOMITINIB [Concomitant]
     Active Substance: DACOMITINIB
     Dosage: 30 MILLIGRAM, QD
     Route: 048
     Dates: start: 202007
  3. DACOMITINIB [Concomitant]
     Active Substance: DACOMITINIB
     Dosage: 15 MILLIGRAM, QD
     Route: 048
  4. ZOLEDRONIC ACID [Concomitant]
     Active Substance: ZOLEDRONIC ACID
     Indication: Prophylaxis
     Route: 065
  5. AUMOLERTINIB [Concomitant]
     Active Substance: AUMOLERTINIB
     Dosage: 110 MILLIGRAM, QD
     Route: 048
  6. GEFITINIB [Concomitant]
     Active Substance: GEFITINIB
     Dosage: 250 MILLIGRAM, QD
     Route: 048
  7. GEFITINIB [Concomitant]
     Active Substance: GEFITINIB
     Route: 048
  8. LAROTRECTINIB [Concomitant]
     Active Substance: LAROTRECTINIB
     Dosage: 100 MILLIGRAM, BID
     Route: 048
  9. LAROTRECTINIB [Concomitant]
     Active Substance: LAROTRECTINIB
     Dosage: 100 MILLIGRAM, BID
     Route: 048
  10. GEMCITABINE [Concomitant]
     Active Substance: GEMCITABINE
     Route: 065
  11. OSIMERTINIB [Concomitant]
     Active Substance: OSIMERTINIB
     Dosage: 80 MILLIGRAM, QD
     Route: 048
  12. CAPMATINIB [Concomitant]
     Active Substance: CAPMATINIB
     Dosage: 400 MILLIGRAM, BID
     Route: 048

REACTIONS (5)
  - Lung neoplasm [Unknown]
  - Osteolysis [Unknown]
  - Metastases to pelvis [Unknown]
  - Paronychia [Unknown]
  - Dermatitis [Unknown]
